FAERS Safety Report 5425436-1 (Version None)
Quarter: 2007Q3

REPORT INFORMATION
  Report Type: 
  Country: None (occurrence: None)
  Receive Date: 20070824
  Receipt Date: 20070815
  Transmission Date: 20080115
  Serious: Yes (Hospitalization, Other)
  Sender: FDA-Public Use
  Company Number: US-PFIZER INC-2007044101

PATIENT
  Sex: Male
  Weight: 75 kg

DRUGS (25)
  1. TIKOSYN [Suspect]
     Indication: ATRIAL FIBRILLATION
  2. COREG [Concomitant]
  3. LASIX [Concomitant]
  4. TYLENOL [Concomitant]
  5. NEXIUM [Concomitant]
  6. GLUCOTROL [Concomitant]
  7. PRINIVIL [Concomitant]
  8. VENTOLIN [Concomitant]
  9. VICODIN [Concomitant]
  10. VITAMIN CAP [Concomitant]
  11. COUMADIN [Concomitant]
  12. FOLIC ACID [Concomitant]
  13. CARBIDOPA [Concomitant]
  14. LANTUS [Concomitant]
  15. PSEUDOEPHEDRINE HCL [Concomitant]
  16. PROVENTIL INHALER [Concomitant]
  17. NOVOLOG [Concomitant]
  18. AMBIEN [Concomitant]
  19. MYLANTA [Concomitant]
  20. ARANESP [Concomitant]
  21. ALDACTONE [Concomitant]
  22. LANOXIN [Concomitant]
  23. LOPERAMIDE HCL [Concomitant]
  24. SINEMET [Concomitant]
  25. ALBUTEROL [Concomitant]

REACTIONS (2)
  - FALL [None]
  - RENAL FAILURE ACUTE [None]
